FAERS Safety Report 21047224 (Version 2)
Quarter: 2022Q3

REPORT INFORMATION
  Report Type: Spontaneous
  Country: US (occurrence: US)
  Receive Date: 20220706
  Receipt Date: 20220928
  Transmission Date: 20221027
  Serious: No
  Sender: FDA-Public Use
  Company Number: US-AVEO ONCOLOGY-2022-AVEO-US000124

PATIENT

DRUGS (11)
  1. FOTIVDA [Suspect]
     Active Substance: TIVOZANIB HYDROCHLORIDE
     Indication: Renal cell carcinoma
     Dosage: 1.34 MG DAILY FOR 21 DAYS WITH 7 DAYS OFF (28-DAY CYCLE)
     Route: 048
     Dates: start: 20220405, end: 2022
  2. FOTIVDA [Suspect]
     Active Substance: TIVOZANIB HYDROCHLORIDE
     Dosage: 1.34 MG DAILY FOR 21 DAYS WITH 7 DAYS OFF (28-DAY CYCLE)
     Route: 048
     Dates: start: 2022, end: 2022
  3. FOTIVDA [Suspect]
     Active Substance: TIVOZANIB HYDROCHLORIDE
     Dosage: 1.34 MG, EVERY OTHER DAY FOR 21 DAYS WITH 7 DAYS OFF (28-DAY CYCLE)
     Route: 048
     Dates: start: 2022
  4. ALEVE [Concomitant]
     Active Substance: NAPROXEN SODIUM
     Dosage: 220 MG
     Route: 048
  5. VITAMINS [Concomitant]
     Active Substance: VITAMINS
     Route: 048
  6. GABAPENTIN [Concomitant]
     Active Substance: GABAPENTIN
     Dosage: 100 MG
     Route: 048
  7. IMODIUM A-D [Concomitant]
     Active Substance: LOPERAMIDE HYDROCHLORIDE
     Dosage: 2 MG
     Route: 048
  8. LISINOPRIL AND HYDROCHLOROTHIAZIDE [Concomitant]
     Active Substance: HYDROCHLOROTHIAZIDE\LISINOPRIL
     Dosage: 20-25MG
  9. TRAMADOL HCL [Concomitant]
     Active Substance: TRAMADOL HYDROCHLORIDE
     Dosage: 50 MG
     Route: 048
  10. VITAMIN D3 [Concomitant]
     Active Substance: CHOLECALCIFEROL
     Dosage: 25 (1000 UT) (DAILY DOSING AND DIRECTIONS NOT PROVIDED)
     Route: 048
  11. AMLODIPINE BESYLATE [Concomitant]
     Active Substance: AMLODIPINE BESYLATE
     Dosage: 10 UNK

REACTIONS (13)
  - Hypertension [Recovering/Resolving]
  - Fatigue [Recovering/Resolving]
  - Blood pressure increased [Recovering/Resolving]
  - Blood pressure abnormal [Recovering/Resolving]
  - Dyspnoea [Recovering/Resolving]
  - Paraesthesia [Recovering/Resolving]
  - Somnolence [Recovering/Resolving]
  - Urine output decreased [Recovering/Resolving]
  - Intentional product use issue [Not Recovered/Not Resolved]
  - Hypersomnia [Recovering/Resolving]
  - Neck pain [Unknown]
  - Arthralgia [Unknown]
  - Hypoaesthesia [Unknown]

NARRATIVE: CASE EVENT DATE: 20220401
